FAERS Safety Report 19444149 (Version 1)
Quarter: 2021Q2

REPORT INFORMATION
  Report Type: Spontaneous
  Country: US (occurrence: US)
  Receive Date: 20210621
  Receipt Date: 20210621
  Transmission Date: 20210717
  Serious: Yes (Death)
  Sender: FDA-Public Use
  Company Number: US-TEVA-2021-US-1924104

PATIENT
  Sex: Male

DRUGS (48)
  1. FENTORA [Suspect]
     Active Substance: FENTANYL CITRATE
     Indication: PAIN
     Dosage: PLACE 1 TABLET (800 MCG) BY BUCCAL ROUTE 4 TIMES PER  DAY FOR 30 DAYS
     Route: 065
  2. OXYCODONE [Suspect]
     Active Substance: OXYCODONE
     Indication: PAIN
     Route: 065
  3. MS IR [Suspect]
     Active Substance: MORPHINE SULFATE
     Indication: PAIN
     Dosage: TAKE 15 MG BY MOUTH EVERY 4 HOURS AS NEEDED FOR SEVERE PAIN
     Route: 048
  4. TESTOSTERONE  CYP [Concomitant]
     Active Substance: TESTOSTERONE CYPIONATE
     Route: 065
  5. MS IR [Suspect]
     Active Substance: MORPHINE SULFATE
     Route: 065
  6. PERCOCET [Suspect]
     Active Substance: ACETAMINOPHEN\OXYCODONE HYDROCHLORIDE
     Indication: PAIN
     Dosage: 10/325  MG, TAKE 1 TABLET BY ORAL ROUTE EVERY ROUTE 6 HOURS AS NEEDED
     Route: 048
  7. GABAPENTIN GLENMARK [Suspect]
     Active Substance: GABAPENTIN
     Route: 065
  8. ROXANE [METHADONE] [Suspect]
     Active Substance: METHADONE HYDROCHLORIDE
     Dosage: TAKE 1 TABLET (30 MG) BY ORAL ROUTE EVERY 6 HOURS FOR 30 DAYS
     Route: 048
  9. CARDIZEM [Concomitant]
     Active Substance: DILTIAZEM HYDROCHLORIDE
     Route: 065
  10. ZANAFLEX [Concomitant]
     Active Substance: TIZANIDINE HYDROCHLORIDE
     Indication: PAIN
  11. MICROZIDE [Concomitant]
     Active Substance: HYDROCHLOROTHIAZIDE
     Dosage: TAKE 1 CAP BY MOUTH DAILY
     Route: 048
  12. SERTRALINE GREENSTONE [Concomitant]
     Route: 065
  13. SIMVASTATIN. [Concomitant]
     Active Substance: SIMVASTATIN
     Route: 065
  14. OXYCODONE HYDROCHLORIDE. [Suspect]
     Active Substance: OXYCODONE HYDROCHLORIDE
     Indication: PAIN
     Route: 065
  15. OXYCONTIN [Suspect]
     Active Substance: OXYCODONE HYDROCHLORIDE
     Indication: PAIN
     Dosage: TAKE 80 MG BY MOUTH EVERY 12 HOURS
     Route: 048
  16. OXY IR [Suspect]
     Active Substance: OXYCODONE HYDROCHLORIDE
     Indication: PAIN
     Route: 065
  17. MORPHINE SULFATE ER [Suspect]
     Active Substance: MORPHINE SULFATE
     Indication: PAIN
     Route: 065
  18. ZOLPIDEM [Suspect]
     Active Substance: ZOLPIDEM TARTRATE
     Route: 065
  19. ROXANE [METHADONE] [Suspect]
     Active Substance: METHADONE HYDROCHLORIDE
     Route: 065
  20. VENTOLIN HFA [Concomitant]
     Active Substance: ALBUTEROL SULFATE
     Indication: WHEEZING
     Dosage: INHALE 1?2 PUFFS BY MOUTH EVERY 4 HOURS AS NEEDED
     Route: 065
  21. ZANAFLEX [Concomitant]
     Active Substance: TIZANIDINE HYDROCHLORIDE
     Indication: MUSCLE SPASMS
     Dosage: TAKE 1 TAB BY MOUTH EVERY 8 HOURS AS NEEDED FOR SPASM AND PAIN
     Route: 048
  22. HYDROCODONE AND ACETAMINOPHEN [Suspect]
     Active Substance: ACETAMINOPHEN\HYDROCODONE
     Indication: PAIN
     Dosage: 7.5/325
     Route: 065
  23. OXYCODONE [Suspect]
     Active Substance: OXYCODONE
     Route: 065
  24. AVINZA [Suspect]
     Active Substance: MORPHINE SULFATE
     Indication: PAIN
     Route: 048
  25. CYMBALTA [Concomitant]
     Active Substance: DULOXETINE HYDROCHLORIDE
     Dosage: TAKE 30 MG BY MOUTH DAILY
     Route: 048
  26. AMBIEN [Concomitant]
     Active Substance: ZOLPIDEM TARTRATE
     Indication: SLEEP DISORDER
     Dosage: TAKE 10 MG BY MOUTH NIGHTLY AS NEEDED
     Route: 048
  27. TIZANIDINE DR REDDY [Concomitant]
     Route: 065
  28. CARISOPRODOL. [Concomitant]
     Active Substance: CARISOPRODOL
     Route: 065
  29. MORPHINE SULFATE. [Suspect]
     Active Substance: MORPHINE SULFATE
     Indication: PAIN
     Dosage: IR
     Route: 065
  30. GABAPENTIN TEVA [Suspect]
     Active Substance: GABAPENTIN
     Indication: PAIN
     Route: 065
  31. ACETAMINOPHEN W/OXYCODONE [Suspect]
     Active Substance: ACETAMINOPHEN\OXYCODONE HYDROCHLORIDE
     Indication: PAIN
     Dosage: 10/325 MG
     Route: 065
  32. OPANA [Suspect]
     Active Substance: OXYMORPHONE HYDROCHLORIDE
     Indication: PAIN
     Route: 065
  33. FENTANYL. [Suspect]
     Active Substance: FENTANYL
     Indication: PAIN
     Route: 065
  34. PROVENTIL HFA [Concomitant]
     Active Substance: ALBUTEROL SULFATE
     Indication: WHEEZING
     Dosage: INHALE 1?2 PUFFS BY MOUTH EVERY 4 HOURS AS NEEDED
     Route: 065
  35. PROAIR HFA [Concomitant]
     Active Substance: ALBUTEROL SULFATE
     Indication: WHEEZING
     Dosage: INHALE 1?2 PUFFS BY MOUTH EVERY 4 HOURS AS NEEDED, 200 PUFFS) 8.5 GM
     Route: 065
  36. GLUCOPHAGE [Concomitant]
     Active Substance: METFORMIN HYDROCHLORIDE
     Route: 065
  37. SERTRALINE GREENSTONE [Concomitant]
     Route: 065
  38. OXYCODONE HYDROCHLORIDE. [Suspect]
     Active Substance: OXYCODONE HYDROCHLORIDE
     Route: 065
  39. OPIOID [Suspect]
     Active Substance: UNSPECIFIED INGREDIENT
     Indication: PAIN
     Route: 065
  40. OXYCONTIN [Suspect]
     Active Substance: OXYCODONE HYDROCHLORIDE
     Route: 065
  41. MS CONTIN [Suspect]
     Active Substance: MORPHINE SULFATE
     Indication: PAIN
     Route: 065
  42. MS IR [Suspect]
     Active Substance: MORPHINE SULFATE
     Route: 065
  43. NEURONTIN [Suspect]
     Active Substance: GABAPENTIN
     Indication: PAIN
     Dosage: TAKE 800 MG BY MOUTH 4 TIMES DAILY
     Route: 048
  44. BUSPIRONE [Suspect]
     Active Substance: BUSPIRONE HYDROCHLORIDE
     Route: 065
  45. LUNESTA [Concomitant]
     Active Substance: ESZOPICLONE
     Dosage: TAKE 1 TABLET (3 MG) BY ORAL ROUTE ONCE DAILY AT BEDTIME FOR 30 DAYS
     Route: 048
  46. OXYMORPHONE HYDROCHLORIDE. [Suspect]
     Active Substance: OXYMORPHONE HYDROCHLORIDE
     Indication: PAIN
     Route: 065
  47. ROXICODONE [Suspect]
     Active Substance: OXYCODONE HYDROCHLORIDE
     Indication: PAIN
     Route: 065
  48. INVOKANA [Concomitant]
     Active Substance: CANAGLIFLOZIN
     Dosage: TAKE ONE TABLET BY MOUTH EVERY MORNING (BEFORE BREAKFAST)
     Route: 048

REACTIONS (1)
  - Death [Fatal]
